FAERS Safety Report 5628768-7 (Version None)
Quarter: 2008Q1

REPORT INFORMATION
  Report Type: 
  Country: None (occurrence: None)
  Receive Date: 20080215
  Receipt Date: 20080215
  Transmission Date: 20080703
  Serious: No
  Sender: FDA-Public Use
  Company Number: None

PATIENT
  Age: 32 Year
  Sex: Female
  Weight: 54.4316 kg

DRUGS (1)
  1. CHANTIX [Suspect]
     Indication: SMOKING CESSATION THERAPY
     Dosage: 0.5MG -FOR 12 WEEKS- QD X 3, THEN BID PO
     Route: 048
     Dates: start: 20080212, end: 20080214

REACTIONS (4)
  - NIGHTMARE [None]
  - PANIC DISORDER [None]
  - SOMNAMBULISM [None]
  - SOMNOLENCE [None]
